FAERS Safety Report 4339374-9 (Version None)
Quarter: 2004Q2

REPORT INFORMATION
  Report Type: 
  Country: None (occurrence: None)
  Receive Date: 20040412
  Receipt Date: 20040330
  Transmission Date: 20050107
  Serious: Yes (Death)
  Sender: FDA-Public Use
  Company Number: 2004008874

PATIENT
  Age: 83 Year
  Sex: Male

DRUGS (13)
  1. GEODON (IM) (ZIPRSIDONE) [Suspect]
     Indication: PSYCHOTIC DISORDER
     Dosage: 20 MG (DAILY), INTRAMUSCULAR
     Route: 030
     Dates: start: 20030713, end: 20030715
  2. VITAMINS (VITAMINS) [Concomitant]
  3. PENTOBARBITAL CAP [Concomitant]
  4. CEFAZOLIN SODIUM [Concomitant]
  5. LINEZOLID (LINEZOLID) [Concomitant]
  6. DROTRECOGIN ALFA (DROTRECOGIN ALFA) [Concomitant]
  7. PSYLLIUM (PSYLLIUM) [Concomitant]
  8. ACETYLSALICYLIC ACID SRT [Concomitant]
  9. DOCUSATE SODIUM (DOCUSATE SODIUM) [Concomitant]
  10. GLICLAZIDE (GLICLAZIDE) [Concomitant]
  11. DIGOXIN [Concomitant]
  12. FUROSEMIDE [Concomitant]
  13. DOPAMINE HCL [Concomitant]

REACTIONS (8)
  - ATRIAL FIBRILLATION [None]
  - MYOCARDIAL INFARCTION [None]
  - PNEUMONIA ASPIRATION [None]
  - RENAL FAILURE ACUTE [None]
  - RESPIRATORY FAILURE [None]
  - STAPHYLOCOCCAL SEPSIS [None]
  - SUPRAVENTRICULAR EXTRASYSTOLES [None]
  - VENTRICULAR EXTRASYSTOLES [None]
